FAERS Safety Report 8195467-X (Version None)
Quarter: 2012Q1

REPORT INFORMATION
  Report Type: 
  Country: None (occurrence: None)
  Receive Date: 20120308
  Receipt Date: 20120301
  Transmission Date: 20120608
  Serious: Yes (Hospitalization)
  Sender: FDA-Public Use
  Company Number: PHEH1995US03573

PATIENT
  Sex: Male
  Weight: 83 kg

DRUGS (4)
  1. NEORAL [Suspect]
     Route: 048
     Dates: start: 19940922
  2. GANCICLOVIR [Concomitant]
  3. PREDNISONE TAB [Concomitant]
     Dosage: UNSPECIFIED
     Route: 065
  4. AZATHIOPRINE [Concomitant]

REACTIONS (7)
  - POSTOPERATIVE WOUND COMPLICATION [None]
  - PYREXIA [None]
  - INFECTION [None]
  - ILEUS [None]
  - LETHARGY [None]
  - CYTOMEGALOVIRUS INFECTION [None]
  - ABDOMINAL DISCOMFORT [None]
